FAERS Safety Report 12887667 (Version 4)
Quarter: 2020Q4

REPORT INFORMATION
  Report Type: Report from Study
  Country: US (occurrence: US)
  Receive Date: 20161026
  Receipt Date: 20201207
  Transmission Date: 20210113
  Serious: Yes (Hospitalization, Other)
  Sender: FDA-Public Use
  Company Number: US-BIOGEN-2016BI00309299

PATIENT
  Age: 42 Year
  Sex: Female

DRUGS (1)
  1. TYSABRI [Suspect]
     Active Substance: NATALIZUMAB
     Indication: MULTIPLE SCLEROSIS
     Dosage: INFUSED OVER 1 HOUR
     Route: 042
     Dates: start: 20150520

REACTIONS (8)
  - Sensory loss [Unknown]
  - Depressed mood [Unknown]
  - Fall [Recovered/Resolved]
  - Thoracic vertebral fracture [Recovered/Resolved]
  - Muscular weakness [Unknown]
  - Osteoporosis [Unknown]
  - Product dose omission issue [Unknown]
  - Thoracic vertebral fracture [Unknown]

NARRATIVE: CASE EVENT DATE: 201612
